FAERS Safety Report 23502849 (Version 1)
Quarter: 2024Q1

REPORT INFORMATION
  Report Type: Spontaneous
  Country: US (occurrence: US)
  Receive Date: 20240208
  Receipt Date: 20240208
  Transmission Date: 20240410
  Serious: No
  Sender: FDA-Public Use
  Company Number: US-INTRA-CELLULAR THERAPIES, INC.-2023ICT01213

PATIENT
  Age: 30 Year
  Sex: Male

DRUGS (5)
  1. CAPLYTA [Suspect]
     Active Substance: LUMATEPERONE
     Indication: Bipolar II disorder
     Dosage: 42 MG
  2. CAPLYTA [Suspect]
     Active Substance: LUMATEPERONE
     Indication: Attention deficit hyperactivity disorder
  3. QUETIAPINE [Concomitant]
     Active Substance: QUETIAPINE
  4. LAMOTRIGINE [Concomitant]
     Active Substance: LAMOTRIGINE
  5. ADDERALL [Concomitant]
     Active Substance: AMPHETAMINE ASPARTATE\AMPHETAMINE SULFATE\DEXTROAMPHETAMINE SACCHARATE\DEXTROAMPHETAMINE SULFATE

REACTIONS (4)
  - Agitation [Recovered/Resolved]
  - Anxiety [Recovered/Resolved]
  - Psychomotor hyperactivity [Recovered/Resolved]
  - Logorrhoea [Recovered/Resolved]
